FAERS Safety Report 9296587 (Version 2)
Quarter: 2013Q2

REPORT INFORMATION
  Report Type: Spontaneous
  Country: US (occurrence: US)
  Receive Date: 20130517
  Receipt Date: 20130531
  Transmission Date: 20140414
  Serious: Yes (Hospitalization)
  Sender: FDA-Public Use
  Company Number: US-BAYER-2013-061427

PATIENT
  Age: 56 Year
  Sex: Male

DRUGS (28)
  1. XARELTO [Suspect]
     Indication: ATRIAL FIBRILLATION
     Dosage: 20 MG, UNK
     Route: 048
     Dates: start: 20130429, end: 20130501
  2. XARELTO [Suspect]
     Indication: CEREBROVASCULAR ACCIDENT PROPHYLAXIS
  3. ACETYLSALICYLIC ACID [Suspect]
     Indication: PRODUCT USED FOR UNKNOWN INDICATION
     Route: 065
     Dates: end: 20130501
  4. METHOTREXATE [Concomitant]
     Indication: RHEUMATOID ARTHRITIS
     Dosage: 2.5 MG, UNK
     Route: 048
     Dates: end: 20130501
  5. LOVENOX [Concomitant]
     Route: 065
     Dates: end: 20130501
  6. LOVENOX [Concomitant]
  7. GABAPENTIN [Concomitant]
     Route: 065
     Dates: end: 20130501
  8. GABAPENTIN [Concomitant]
  9. ATORVASTATIN [Concomitant]
     Route: 065
     Dates: end: 20130501
  10. ATORVASTATIN [Concomitant]
  11. METFORMIN [Concomitant]
     Indication: DIABETES MELLITUS
     Route: 065
     Dates: end: 20130501
  12. METFORMIN [Concomitant]
  13. LISINOPRIL [Concomitant]
     Route: 065
     Dates: end: 20130501
  14. LISINOPRIL [Concomitant]
  15. GLIMEPIRIDE [Concomitant]
     Indication: DIABETES MELLITUS
     Route: 065
     Dates: end: 20130501
  16. GLIMEPIRIDE [Concomitant]
  17. DILTIAZEM [Concomitant]
     Route: 065
  18. DILTIAZEM [Concomitant]
  19. METOPROLOL [Concomitant]
     Route: 065
  20. METOPROLOL [Concomitant]
  21. LASIX [Concomitant]
     Route: 065
  22. LASIX [Concomitant]
  23. POTASSIUM [Concomitant]
     Route: 065
  24. POTASSIUM [Concomitant]
  25. VICODIN [Concomitant]
     Route: 065
  26. VICODIN [Concomitant]
  27. ALBUTEROL [Concomitant]
     Route: 065
  28. ALBUTEROL [Concomitant]

REACTIONS (14)
  - Stevens-Johnson syndrome [Recovering/Resolving]
  - Renal failure acute [Recovering/Resolving]
  - Hepatic function abnormal [Unknown]
  - Thrombocytopenia [Unknown]
  - Haemoglobin decreased [Unknown]
  - Haematocrit decreased [Unknown]
  - Rash [Unknown]
  - Bilirubin conjugated increased [None]
  - Blood bilirubin increased [None]
  - Blood folate decreased [None]
  - Vitamin B12 decreased [None]
  - Product quality issue [None]
  - Treatment noncompliance [None]
  - Drug administration error [None]
